FAERS Safety Report 8987872 (Version 2)
Quarter: 2013Q1

REPORT INFORMATION
  Report Type: Spontaneous
  Country: IT (occurrence: IT)
  Receive Date: 20121227
  Receipt Date: 20130212
  Transmission Date: 20140127
  Serious: Yes (Hospitalization)
  Sender: FDA-Public Use
  Company Number: IT-PFIZER INC-2012325689

PATIENT
  Age: 64 Year
  Sex: Male

DRUGS (5)
  1. VINCRISTINA [Suspect]
     Indication: NON-HODGKIN^S LYMPHOMA
     Dosage: 2 MG, CYCLIC
     Route: 042
     Dates: start: 20120829, end: 20120829
  2. ADRIBLASTINA [Suspect]
     Indication: NON-HODGKIN^S LYMPHOMA
     Dosage: 90 MG, CYCLIC
     Route: 042
     Dates: start: 20120829, end: 20120829
  3. ENDOXAN [Suspect]
     Indication: NON-HODGKIN^S LYMPHOMA
     Dosage: 1385 MG, CYCLIC
     Route: 042
     Dates: start: 20120829, end: 20120829
  4. MABTHERA [Suspect]
     Indication: NON-HODGKIN^S LYMPHOMA
     Dosage: 690 MG, CYCLIC
     Route: 042
     Dates: start: 20120829, end: 20120829
  5. DELTACORTENE [Concomitant]

REACTIONS (3)
  - Neutropenia [Recovering/Resolving]
  - Thrombocytopenia [Recovering/Resolving]
  - Urinary tract infection enterococcal [Recovering/Resolving]
